FAERS Safety Report 5853638-9 (Version None)
Quarter: 2008Q3

REPORT INFORMATION
  Report Type: 
  Country: None (occurrence: None)
  Receive Date: 20080822
  Receipt Date: 20080813
  Transmission Date: 20090109
  Serious: Yes (Hospitalization)
  Sender: FDA-Public Use
  Company Number: DK-NOVOPROD-278168

PATIENT
  Age: 41 Year
  Sex: Female
  Weight: 60 kg

DRUGS (3)
  1. LEVEMIR [Suspect]
     Indication: TYPE 1 DIABETES MELLITUS
     Dosage: 16 IE, QD
     Dates: start: 20080313
  2. NOVORAPID [Suspect]
     Dosage: 15 IE, QD
  3. BECONASE [Concomitant]

REACTIONS (1)
  - ABORTION SPONTANEOUS [None]
